FAERS Safety Report 19825398 (Version 1)
Quarter: 2021Q3

REPORT INFORMATION
  Report Type: Spontaneous
  Country: US (occurrence: US)
  Receive Date: 20210914
  Receipt Date: 20210914
  Transmission Date: 20211014
  Serious: Yes (Other)
  Sender: FDA-Public Use
  Company Number: US-JNJFOC-20210914343

PATIENT
  Age: 63 Year
  Sex: Female
  Weight: 80.7 kg

DRUGS (32)
  1. NURTEC ODT [Suspect]
     Active Substance: RIMEGEPANT SULFATE
     Indication: MIGRAINE
     Route: 048
     Dates: start: 2021
  2. MYRBETRIQ [Concomitant]
     Active Substance: MIRABEGRON
  3. ZETIA [Concomitant]
     Active Substance: EZETIMIBE
  4. SPIRONOLACTONE. [Concomitant]
     Active Substance: SPIRONOLACTONE
  5. FOLIC ACID. [Concomitant]
     Active Substance: FOLIC ACID
  6. SERTRALINE [Concomitant]
     Active Substance: SERTRALINE HYDROCHLORIDE
  7. CLONIDINE. [Concomitant]
     Active Substance: CLONIDINE
  8. VENTOLIN [Concomitant]
     Active Substance: ALBUTEROL SULFATE
  9. LEVOTHYROXINE. [Concomitant]
     Active Substance: LEVOTHYROXINE
  10. PROCHLORPERAZINE. [Concomitant]
     Active Substance: PROCHLORPERAZINE
  11. LIDOCAINE. [Concomitant]
     Active Substance: LIDOCAINE
  12. EMGALITY [Concomitant]
     Active Substance: GALCANEZUMAB-GNLM
  13. FENTANYL. [Suspect]
     Active Substance: FENTANYL
     Indication: PAIN
     Route: 062
  14. BOTOX [Concomitant]
     Active Substance: ONABOTULINUMTOXINA
     Indication: MIGRAINE
     Dosage: EVERY 10 WEEKS
  15. ASPRIN [Concomitant]
     Active Substance: ASPIRIN
  16. MONTELUKAST [Concomitant]
     Active Substance: MONTELUKAST SODIUM
  17. FISH OIL [Concomitant]
     Active Substance: FISH OIL
  18. SPRIX [Concomitant]
     Active Substance: KETOROLAC TROMETHAMINE
     Indication: MIGRAINE
  19. SYMBICORT [Concomitant]
     Active Substance: BUDESONIDE\FORMOTEROL FUMARATE DIHYDRATE
  20. JARDIANCE [Concomitant]
     Active Substance: EMPAGLIFLOZIN
  21. PANTOPRAZOLE [Concomitant]
     Active Substance: PANTOPRAZOLE
  22. LACTULOSE. [Concomitant]
     Active Substance: LACTULOSE
  23. FLECTOR TISSUGEL EP [Concomitant]
     Route: 062
  24. PRIMROSE [Concomitant]
  25. VITAMIN D3 [Concomitant]
     Active Substance: CHOLECALCIFEROL
  26. TORSEMIDE. [Concomitant]
     Active Substance: TORSEMIDE
  27. CARTIA XT [Concomitant]
     Active Substance: DILTIAZEM HYDROCHLORIDE
  28. BYSTOLIC [Concomitant]
     Active Substance: NEBIVOLOL HYDROCHLORIDE
  29. TIZANIDINE. [Concomitant]
     Active Substance: TIZANIDINE
  30. OXYCODONE [Concomitant]
     Active Substance: OXYCODONE
  31. QUININE [Concomitant]
     Active Substance: QUININE
  32. DIAZEPAM. [Concomitant]
     Active Substance: DIAZEPAM

REACTIONS (5)
  - Nephrolithiasis [Not Recovered/Not Resolved]
  - Drug withdrawal syndrome [Recovered/Resolved]
  - Migraine [Not Recovered/Not Resolved]
  - Kidney infection [Not Recovered/Not Resolved]
  - Nephritis [Not Recovered/Not Resolved]

NARRATIVE: CASE EVENT DATE: 2021
